FAERS Safety Report 9183123 (Version 1)
Quarter: 2013Q1

REPORT INFORMATION
  Report Type: Spontaneous
  Country: US (occurrence: US)
  Receive Date: 20130322
  Receipt Date: 20130322
  Transmission Date: 20140127
  Serious: Yes (Other)
  Sender: FDA-Public Use
  Company Number: US-BRISTOL-MYERS SQUIBB COMPANY-16383192

PATIENT
  Age: 76 Year
  Sex: Female
  Weight: 91.61 kg

DRUGS (1)
  1. ERBITUX SOLN FOR INF [Suspect]
     Indication: COLON CANCER
     Dosage: INF: 5. 5TH INF ON 2FEB12
     Dates: start: 20120106, end: 20120202

REACTIONS (1)
  - Dermatitis acneiform [Unknown]
